FAERS Safety Report 12934205 (Version 1)
Quarter: 2016Q4

REPORT INFORMATION
  Report Type: Report from Study
  Country: US (occurrence: US)
  Receive Date: 20161111
  Receipt Date: 20161111
  Transmission Date: 20170207
  Serious: Yes (Other)
  Sender: FDA-Public Use
  Company Number: PHEH2016US029322

PATIENT
  Sex: Female

DRUGS (2)
  1. SANDIMMUNE [Suspect]
     Active Substance: CYCLOSPORINE
     Indication: TRANSPLANT
     Route: 065
  2. NEORAL [Suspect]
     Active Substance: CYCLOSPORINE
     Indication: TRANSPLANT
     Route: 065

REACTIONS (4)
  - Transplant rejection [Unknown]
  - Impaired healing [Unknown]
  - Lower limb fracture [Unknown]
  - Osteoporosis [Unknown]
